FAERS Safety Report 9883193 (Version 2)
Quarter: 2014Q1

REPORT INFORMATION
  Report Type: Spontaneous
  Country: US (occurrence: US)
  Receive Date: 20140208
  Receipt Date: 20140225
  Transmission Date: 20141002
  Serious: Yes (Hospitalization, Other)
  Sender: FDA-Public Use
  Company Number: US-009507513-1402USA003325

PATIENT
  Sex: 0

DRUGS (3)
  1. REBETOL [Suspect]
     Indication: HEPATITIS C
     Dosage: UNK
  2. PEGINTRON [Suspect]
     Indication: HEPATITIS C
     Dosage: UNK
  3. TELAPREVIR [Suspect]
     Indication: HEPATITIS C
     Dosage: UNK

REACTIONS (18)
  - Inflammation [Unknown]
  - Syncope [Unknown]
  - Infection [Unknown]
  - Hypokalaemia [Unknown]
  - Hyperkalaemia [Unknown]
  - Hypoaesthesia [Unknown]
  - Dermatitis [Unknown]
  - Hepatic cirrhosis [Unknown]
  - Colitis [Unknown]
  - Appendicitis [Unknown]
  - Ascites [Unknown]
  - Anaemia [Unknown]
  - Hepatic encephalopathy [Unknown]
  - Arrhythmia [Unknown]
  - Renal failure [Unknown]
  - Dyspnoea [Unknown]
  - Anorectal discomfort [Unknown]
  - Fatigue [Unknown]
